FAERS Safety Report 5344983-4 (Version None)
Quarter: 2007Q2

REPORT INFORMATION
  Report Type: 
  Country: None (occurrence: None)
  Receive Date: 20070416
  Receipt Date: 20061220
  Transmission Date: 20071010
  Serious: No
  Sender: FDA-Public Use
  Company Number: 2006SP004446

PATIENT
  Age: 77 Year
  Sex: Male
  Weight: 102.0593 kg

DRUGS (5)
  1. LUNESTA [Suspect]
     Indication: INSOMNIA
     Dosage: 3 MG;HS;ORAL
     Route: 048
     Dates: start: 20061215
  2. AMBIEN [Concomitant]
  3. DOXAZOSIN MESYLATE [Concomitant]
  4. TAMSULOSIN HCL [Concomitant]
  5. CHLORTHALIDONE [Concomitant]

REACTIONS (3)
  - DRUG INEFFECTIVE [None]
  - DYSGEUSIA [None]
  - MIDDLE INSOMNIA [None]
